FAERS Safety Report 10273191 (Version 1)
Quarter: 2014Q1

REPORT INFORMATION
  Report Type: Spontaneous
  Country: US (occurrence: None)
  Receive Date: 20140306
  Receipt Date: 20140306
  Transmission Date: 20141002
  Serious: Yes (Hospitalization, Other)
  Sender: FDA-Public Use
  Company Number: 163-21880-13083666

PATIENT
  Age: 79 Year
  Sex: Female

DRUGS (7)
  1. REVLIMID (LENALIDOMIDE) (25 MILLIGRAM, CAPSULES) [Suspect]
     Indication: PLASMA CELL MYELOMA
     Dosage: 25 MG, 21 IN 28 D, PO
     Route: 048
     Dates: start: 20130405
  2. NORVASC (AMLODIPINE BESILATE) (UNKNOWN) [Concomitant]
     Indication: PLASMA CELL MYELOMA
  3. ASPIRIN LOW STRENGTH (ACETYLSALICYLIC ACID) (UNKNOWN) [Concomitant]
  4. VITAMIN D (ERGOCALCIFEROL) (UNKNOWN) [Concomitant]
  5. LIPITOR (ATORVASTATIN) (UNKNOWN) [Concomitant]
  6. POTASSIUM (POTASSIUM) (UNKNOWN) [Concomitant]
  7. DEXAMETHASONE (DEXAMETHASONE) (UNKNOWN) [Concomitant]

REACTIONS (1)
  - Pneumonia [None]
